FAERS Safety Report 11942414 (Version 1)
Quarter: 2016Q1

REPORT INFORMATION
  Report Type: Spontaneous
  Country: US (occurrence: US)
  Receive Date: 20160125
  Receipt Date: 20160125
  Transmission Date: 20160526
  Serious: Yes (Hospitalization, Other)
  Sender: FDA-Public Use
  Company Number: US-ZYDUS-010024

PATIENT
  Age: 28 Year
  Sex: Male

DRUGS (2)
  1. ETHANOL [Concomitant]
     Active Substance: ALCOHOL
     Indication: PRODUCT USED FOR UNKNOWN INDICATION
  2. NAPROXEN. [Suspect]
     Active Substance: NAPROXEN
     Indication: PRODUCT USED FOR UNKNOWN INDICATION
     Dosage: 320 TABLETS OF 220 MG (70.4 G)
     Route: 048

REACTIONS (11)
  - Lethargy [Unknown]
  - Hypotension [Unknown]
  - Renal tubular necrosis [Recovered/Resolved]
  - Suicide attempt [Unknown]
  - Generalised tonic-clonic seizure [Unknown]
  - Encephalopathy [Unknown]
  - Metabolic acidosis [Recovered/Resolved]
  - Overdose [Unknown]
  - Sinus tachycardia [Unknown]
  - Somnolence [Unknown]
  - Sedation [Unknown]
